FAERS Safety Report 15690720 (Version 1)
Quarter: 2018Q4

REPORT INFORMATION
  Report Type: Report from Study
  Country: US (occurrence: US)
  Receive Date: 20181205
  Receipt Date: 20181205
  Transmission Date: 20190205
  Serious: Yes (Life-Threatening, Hospitalization)
  Sender: FDA-Public Use
  Company Number: US-THERAVANCE-2016-000334

PATIENT
  Sex: Male

DRUGS (2)
  1. TELAVANCIN [Suspect]
     Active Substance: TELAVANCIN
     Indication: BACTERAEMIA
     Dosage: 7.5 MG/KG
     Route: 042
     Dates: start: 20161027, end: 20161205
  2. NOVOLOG [Concomitant]
     Active Substance: INSULIN ASPART
     Indication: DIABETES MELLITUS

REACTIONS (1)
  - Osteomyelitis [Recovered/Resolved]

NARRATIVE: CASE EVENT DATE: 20161201
